FAERS Safety Report 18556841 (Version 4)
Quarter: 2023Q2

REPORT INFORMATION
  Report Type: Report from Study
  Country: CA (occurrence: CA)
  Receive Date: 20201128
  Receipt Date: 20230615
  Transmission Date: 20230722
  Serious: Yes (Other)
  Sender: FDA-Public Use
  Company Number: NVSC2020CA315618

PATIENT
  Sex: Male

DRUGS (1)
  1. GILENYA [Suspect]
     Active Substance: FINGOLIMOD HYDROCHLORIDE
     Indication: Relapsing-remitting multiple sclerosis
     Dosage: UNK
     Route: 048
     Dates: start: 20130115

REACTIONS (3)
  - Expanded disability status scale score increased [Unknown]
  - Multiple sclerosis pseudo relapse [Unknown]
  - Viral infection [Unknown]

NARRATIVE: CASE EVENT DATE: 20210901
